FAERS Safety Report 7994442-5 (Version None)
Quarter: 2011Q4

REPORT INFORMATION
  Report Type: 
  Country: None (occurrence: None)
  Receive Date: 20111220
  Receipt Date: 20110928
  Transmission Date: 20120403
  Serious: No
  Sender: FDA-Public Use
  Company Number: US-GLAXOSMITHKLINE-A0946321A

PATIENT
  Age: 31 Year
  Sex: Female

DRUGS (2)
  1. LAMICTAL [Suspect]
     Indication: EPILEPSY
     Dosage: 400MG PER DAY
     Route: 048
     Dates: start: 20110923, end: 20110927
  2. NO CONCURRENT MEDICATION [Concomitant]

REACTIONS (5)
  - HYPERHIDROSIS [None]
  - PYREXIA [None]
  - NAUSEA [None]
  - TREMOR [None]
  - DREAMY STATE [None]
